FAERS Safety Report 17386265 (Version 1)
Quarter: 2020Q1

REPORT INFORMATION
  Report Type: Spontaneous
  Country: US (occurrence: US)
  Receive Date: 20200206
  Receipt Date: 20200206
  Transmission Date: 20200409
  Serious: Yes (Hospitalization, Other)
  Sender: FDA-Public Use
  Company Number: US-JNJFOC-20200149952

PATIENT
  Age: 21 Year
  Sex: Female
  Weight: 68.1 kg

DRUGS (5)
  1. TOPAMAX [Suspect]
     Active Substance: TOPIRAMATE
     Indication: MIGRAINE
     Dosage: TITRATED FROM 50 MG TO 175 MG WITHIN THREE DAYS (21-JAN-2009 TO 23-JAN-2009)
     Route: 048
     Dates: start: 20090121
  2. TOPAMAX [Suspect]
     Active Substance: TOPIRAMATE
     Route: 048
     Dates: start: 200902
  3. TOPAMAX [Suspect]
     Active Substance: TOPIRAMATE
     Route: 048
     Dates: start: 20090303
  4. TOPAMAX [Suspect]
     Active Substance: TOPIRAMATE
     Route: 048
     Dates: start: 20090420
  5. TOPAMAX [Suspect]
     Active Substance: TOPIRAMATE
     Route: 048
     Dates: start: 20090129

REACTIONS (12)
  - Product prescribing error [Unknown]
  - Tremor [Unknown]
  - Nervous system disorder [Unknown]
  - Suicide attempt [Unknown]
  - Nausea [Unknown]
  - Toxicity to various agents [Unknown]
  - Vision blurred [Unknown]
  - Confusional state [Unknown]
  - Hypotension [Unknown]
  - Memory impairment [Not Recovered/Not Resolved]
  - Major depression [Unknown]
  - Weight decreased [Unknown]

NARRATIVE: CASE EVENT DATE: 200901
